FAERS Safety Report 20544942 (Version 2)
Quarter: 2022Q2

REPORT INFORMATION
  Report Type: Spontaneous
  Country: GB (occurrence: GB)
  Receive Date: 20220303
  Receipt Date: 20220404
  Transmission Date: 20220721
  Serious: Yes (Hospitalization, Other)
  Sender: FDA-Public Use
  Company Number: GB-Accord-255881

PATIENT
  Age: 42 Year
  Sex: Female

DRUGS (3)
  1. CARBOPLATIN [Suspect]
     Active Substance: CARBOPLATIN
     Indication: Non-small cell lung cancer
     Dates: start: 202004
  2. PEMETREXED [Suspect]
     Active Substance: PEMETREXED
     Indication: Non-small cell lung cancer
     Dosage: CYCLICAL
     Dates: start: 202004
  3. PEMBROLIZUMAB [Suspect]
     Active Substance: PEMBROLIZUMAB
     Indication: Non-small cell lung cancer
     Dates: start: 202004

REACTIONS (5)
  - Cancer pain [Recovering/Resolving]
  - Anaemia [Unknown]
  - Fatigue [Unknown]
  - Drug ineffective [Unknown]
  - Malignant neoplasm progression [Unknown]
